FAERS Safety Report 20929574 (Version 2)
Quarter: 2022Q3

REPORT INFORMATION
  Report Type: Spontaneous
  Country: DE (occurrence: DE)
  Receive Date: 20220608
  Receipt Date: 20220714
  Transmission Date: 20221027
  Serious: Yes (Hospitalization)
  Sender: FDA-Public Use
  Company Number: DE-Hikma Pharmaceuticals-DE-H14001-22-01404

PATIENT
  Age: 63 Year
  Sex: Male
  Weight: 66 kg

DRUGS (4)
  1. LEUCOVORIN [Suspect]
     Active Substance: LEUCOVORIN
     Indication: Gastric cancer stage IV
     Route: 042
     Dates: start: 20220512
  2. FLUOROURACIL [Suspect]
     Active Substance: FLUOROURACIL
     Indication: Gastric cancer stage IV
     Route: 042
     Dates: start: 20220512
  3. OXALIPLATIN [Suspect]
     Active Substance: OXALIPLATIN
     Indication: Gastric cancer stage IV
     Route: 042
     Dates: start: 20220512
  4. NIVOLUMAB [Concomitant]
     Active Substance: NIVOLUMAB
     Indication: Product used for unknown indication
     Dosage: UNKNOWN
     Route: 065

REACTIONS (2)
  - Tremor [Unknown]
  - Cyanosis [Unknown]

NARRATIVE: CASE EVENT DATE: 20220512
